FAERS Safety Report 5948416-6 (Version None)
Quarter: 2008Q4

REPORT INFORMATION
  Report Type: 
  Country: None (occurrence: None)
  Receive Date: 20081110
  Receipt Date: 20081110
  Transmission Date: 20090506
  Serious: Yes (Hospitalization, Other)
  Sender: FDA-Public Use
  Company Number: None

PATIENT
  Age: 40 Year
  Sex: Female
  Weight: 79.3795 kg

DRUGS (1)
  1. FACTIVE [Suspect]
     Indication: SINUSITIS
     Dosage: 1 TABLET 1X PO
     Route: 048
     Dates: start: 20081018, end: 20081024

REACTIONS (20)
  - ABDOMINAL PAIN UPPER [None]
  - AGEUSIA [None]
  - ANOSMIA [None]
  - BEDRIDDEN [None]
  - BLADDER DISORDER [None]
  - DRUG EFFECT DECREASED [None]
  - DYSPNOEA [None]
  - DYSURIA [None]
  - FEELING ABNORMAL [None]
  - HAEMATOCHEZIA [None]
  - INSOMNIA [None]
  - LOSS OF EMPLOYMENT [None]
  - MOVEMENT DISORDER [None]
  - MUSCLE STRAIN [None]
  - MYALGIA [None]
  - PAIN [None]
  - PRURITUS [None]
  - RASH GENERALISED [None]
  - RENAL PAIN [None]
  - VISION BLURRED [None]
